FAERS Safety Report 9907710 (Version 1)
Quarter: 2014Q1

REPORT INFORMATION
  Report Type: Spontaneous
  Country: US (occurrence: US)
  Receive Date: 20140219
  Receipt Date: 20140219
  Transmission Date: 20141002
  Serious: No
  Sender: FDA-Public Use
  Company Number: US-BIOGENIDEC-2014BI015182

PATIENT
  Age: 59 Year
  Sex: Male

DRUGS (1)
  1. TYSABRI [Suspect]
     Indication: MULTIPLE SCLEROSIS
     Route: 042
     Dates: start: 20110208

REACTIONS (5)
  - Off label use [Recovered/Resolved]
  - Local swelling [Recovered/Resolved]
  - Sinus disorder [Not Recovered/Not Resolved]
  - Pain [Recovered/Resolved]
  - Temperature intolerance [Recovered/Resolved]
